FAERS Safety Report 15057147 (Version 1)
Quarter: 2018Q2

REPORT INFORMATION
  Report Type: Spontaneous
  Country: US (occurrence: US)
  Receive Date: 20180605
  Receipt Date: 20180605
  Transmission Date: 20180711
  Serious: Yes (Other)
  Sender: FDA-Public Use
  Company Number: None

PATIENT
  Age: 67 Year
  Sex: Female
  Weight: 618.75 kg

DRUGS (13)
  1. CYCLOPHOSPHAMIDE. [Suspect]
     Active Substance: CYCLOPHOSPHAMIDE
     Indication: PLASMA CELL MYELOMA
     Dosage: 500 MG DAY 1, 8, 15; ORAL?
     Route: 048
     Dates: start: 20180509, end: 20180605
  2. ACYCLOVIR. [Concomitant]
     Active Substance: ACYCLOVIR
  3. CALCIUM [Concomitant]
     Active Substance: CALCIUM
  4. MELOXICAM. [Concomitant]
     Active Substance: MELOXICAM
  5. OXYCONTIN [Concomitant]
     Active Substance: OXYCODONE HYDROCHLORIDE
  6. OXYBUTYNIN. [Concomitant]
     Active Substance: OXYBUTYNIN CHLORIDE
  7. OMEPRAZOLE. [Concomitant]
     Active Substance: OMEPRAZOLE
  8. PERCOCET [Concomitant]
     Active Substance: ACETAMINOPHEN\OXYCODONE HYDROCHLORIDE
  9. HYDROCODONE [Concomitant]
     Active Substance: HYDROCODONE
  10. TYLENOL [Concomitant]
     Active Substance: ACETAMINOPHEN
  11. WELCHOL [Concomitant]
     Active Substance: COLESEVELAM HYDROCHLORIDE
  12. LATANOPROST. [Concomitant]
     Active Substance: LATANOPROST
  13. NITROSTAT [Concomitant]
     Active Substance: NITROGLYCERIN

REACTIONS (1)
  - Disease progression [None]
